FAERS Safety Report 21508905 (Version 3)
Quarter: 2022Q4

REPORT INFORMATION
  Report Type: Report from Study
  Country: US (occurrence: US)
  Receive Date: 20221026
  Receipt Date: 20221129
  Transmission Date: 20230113
  Serious: Yes (Hospitalization, Other)
  Sender: FDA-Public Use
  Company Number: US-Taiho Oncology Inc-EU-2022-01686

PATIENT
  Age: 64 Year
  Sex: Female
  Weight: 87.09 kg

DRUGS (1)
  1. LONSURF [Suspect]
     Active Substance: TIPIRACIL HYDROCHLORIDE\TRIFLURIDINE
     Indication: Neoplasm malignant
     Dosage: CURRENT CYCLE UNKNOWN
     Route: 048
     Dates: start: 20220527

REACTIONS (10)
  - Blood iron decreased [Unknown]
  - Haemoglobin decreased [Unknown]
  - Decreased appetite [Unknown]
  - White blood cell count decreased [Unknown]
  - Alopecia [Recovering/Resolving]
  - Fatigue [Unknown]
  - Diarrhoea [Unknown]
  - Blood folate decreased [Unknown]
  - Product dose omission in error [Unknown]
  - Off label use [Unknown]
